FAERS Safety Report 21129531 (Version 1)
Quarter: 2022Q3

REPORT INFORMATION
  Report Type: Spontaneous
  Country: NP (occurrence: NP)
  Receive Date: 20220726
  Receipt Date: 20220726
  Transmission Date: 20221026
  Serious: Yes (Life-Threatening, Hospitalization)
  Sender: FDA-Public Use
  Company Number: NP-MACLEODS PHARMACEUTICALS US LTD-MAC2022036520

PATIENT

DRUGS (2)
  1. OLANZAPINE [Suspect]
     Active Substance: OLANZAPINE
     Indication: Schizophrenia
     Dosage: UNK
     Route: 065
  2. OLANZAPINE [Suspect]
     Active Substance: OLANZAPINE
     Dosage: 400 MILLIGRAM, SINGLE
     Route: 065

REACTIONS (6)
  - Myopathy toxic [Unknown]
  - Respiratory alkalosis [Unknown]
  - Toxicity to various agents [Unknown]
  - Somnolence [Unknown]
  - Vomiting [Unknown]
  - Overdose [Unknown]
